FAERS Safety Report 20567768 (Version 3)
Quarter: 2022Q1

REPORT INFORMATION
  Report Type: Spontaneous
  Country: JP (occurrence: JP)
  Receive Date: 20220308
  Receipt Date: 20220316
  Transmission Date: 20220423
  Serious: Yes (Death, Other)
  Sender: FDA-Public Use
  Company Number: JP-JNJFOC-20220300082

PATIENT
  Age: 6 Decade
  Sex: Male

DRUGS (3)
  1. TRACLEER [Suspect]
     Active Substance: BOSENTAN
     Indication: Pulmonary arterial hypertension
     Dosage: THERAPY END DATE: //2010
     Route: 048
     Dates: start: 2007
  2. BERAPROST SODIUM [Concomitant]
     Active Substance: BERAPROST SODIUM
     Indication: Mixed connective tissue disease
     Dosage: DOSE UNKNOWN, THERAPY END DATE: //2010
     Route: 048
     Dates: start: 1992
  3. PREDNISOLONE [Concomitant]
     Active Substance: PREDNISOLONE
     Indication: Mixed connective tissue disease
     Dosage: DOSE UNKNOWN, THERAPY END DATE: //2010
     Route: 065
     Dates: start: 1992

REACTIONS (4)
  - Dyspnoea [Fatal]
  - Nasopharyngitis [Fatal]
  - Aortic stenosis [Fatal]
  - Pulmonary embolism [Fatal]

NARRATIVE: CASE EVENT DATE: 20100101
